FAERS Safety Report 9057283 (Version 1)
Quarter: 2013Q1

REPORT INFORMATION
  Report Type: Report from Study
  Country: JP (occurrence: JP)
  Receive Date: 20130131
  Receipt Date: 20130131
  Transmission Date: 20140127
  Serious: Yes (Other)
  Sender: FDA-Public Use
  Company Number: JP-GLAXOSMITHKLINE-B0860465A

PATIENT
  Age: 69 None
  Sex: Female
  Weight: 48 kg

DRUGS (3)
  1. TYKERB [Suspect]
     Indication: BREAST CANCER
     Route: 048
     Dates: start: 20090624
  2. XELODA [Concomitant]
     Route: 048
     Dates: start: 20090624, end: 20090929
  3. XELODA [Concomitant]
     Route: 048
     Dates: start: 20090930, end: 20091016

REACTIONS (1)
  - Bronchial haemorrhage [Recovering/Resolving]
